FAERS Safety Report 8920727 (Version 3)
Quarter: 2013Q1

REPORT INFORMATION
  Report Type: Spontaneous
  Country: US (occurrence: US)
  Receive Date: 20121122
  Receipt Date: 20130104
  Transmission Date: 20140127
  Serious: Yes (Hospitalization, Other)
  Sender: FDA-Public Use
  Company Number: US-AMGEN-USASP2012074531

PATIENT
  Age: 60 Year
  Sex: Female
  Weight: 70 kg

DRUGS (3)
  1. ENBREL [Suspect]
     Indication: RHEUMATOID ARTHRITIS
     Dosage: 50 MG, QWK
     Dates: start: 20050520
  2. METHOTREXATE [Concomitant]
     Dosage: UNK
  3. ORENCIA [Concomitant]
     Dosage: UNK
     Dates: end: 201104

REACTIONS (13)
  - Myocardial infarction [Recovered/Resolved]
  - Intestinal perforation [Recovered/Resolved]
  - Intestinal obstruction [Unknown]
  - Nausea [Recovered/Resolved]
  - Dehydration [Recovered/Resolved]
  - Walking disability [Recovered/Resolved]
  - Muscle spasms [Not Recovered/Not Resolved]
  - Muscle contracture [Not Recovered/Not Resolved]
  - Gait disturbance [Not Recovered/Not Resolved]
  - Pain [Recovered/Resolved]
  - Inflammation [Recovered/Resolved]
  - Blood sodium decreased [Recovered/Resolved]
  - Injection site pain [Not Recovered/Not Resolved]
